FAERS Safety Report 12092998 (Version 1)
Quarter: 2016Q1

REPORT INFORMATION
  Report Type: Spontaneous
  Country: US (occurrence: US)
  Receive Date: 20160219
  Receipt Date: 20160219
  Transmission Date: 20160526
  Serious: No
  Sender: FDA-Public Use
  Company Number: US-PFIZER INC-2016040460

PATIENT
  Sex: Male
  Weight: 58.97 kg

DRUGS (5)
  1. KEPPRA [Concomitant]
     Active Substance: LEVETIRACETAM
     Indication: SEIZURE
     Dosage: 500 MG, 2X/DAY
     Route: 048
  2. ALPRAZOLAM. [Concomitant]
     Active Substance: ALPRAZOLAM
     Indication: ANXIETY DISORDER
     Dosage: 1MG TABLET ONE EVERY 6 HOURS
  3. DILTIAZEM HYDROCHLORIDE EXTENDED RELEASE [Concomitant]
     Active Substance: DILTIAZEM HYDROCHLORIDE
     Indication: HYPERTENSION
     Dosage: 180 MG, 2X/DAY
     Route: 048
  4. LIPITOR [Suspect]
     Active Substance: ATORVASTATIN CALCIUM
     Indication: BLOOD CHOLESTEROL ABNORMAL
     Dosage: UNK, 1X/DAY
     Route: 048
     Dates: end: 2015
  5. CELEXA [Concomitant]
     Active Substance: CITALOPRAM HYDROBROMIDE
     Indication: DEPRESSION
     Dosage: ONE 40MG TABLET BY MOUTH EVERY NIGHT
     Route: 048

REACTIONS (5)
  - Diarrhoea [Recovered/Resolved]
  - Constipation [Recovered/Resolved]
  - Insomnia [Recovering/Resolving]
  - Prostatomegaly [Unknown]
  - Pollakiuria [Unknown]
